FAERS Safety Report 22274218 (Version 1)
Quarter: 2023Q2

REPORT INFORMATION
  Report Type: Spontaneous
  Country: US (occurrence: None)
  Receive Date: 20230501
  Receipt Date: 20230501
  Transmission Date: 20230721
  Serious: Yes (Life-Threatening, Disabling, Other)
  Sender: FDA-Public Use
  Company Number: None

PATIENT
  Age: 61 Year
  Sex: Male
  Weight: 100.35 kg

DRUGS (7)
  1. SINGULAIR [Suspect]
     Active Substance: MONTELUKAST SODIUM
     Indication: Cough
     Route: 048
     Dates: start: 20220505, end: 20230120
  2. PRALUENT [Concomitant]
     Active Substance: ALIROCUMAB
  3. HYDROCHLOROTHIAZIDE\LOSARTAN [Concomitant]
     Active Substance: HYDROCHLOROTHIAZIDE\LOSARTAN
  4. FENOFIBRATE [Concomitant]
     Active Substance: FENOFIBRATE
  5. Lovasa [Concomitant]
  6. Potasium Citrate [Concomitant]
  7. ASPIRIN [Concomitant]
     Active Substance: ASPIRIN

REACTIONS (9)
  - Depression [None]
  - Weight increased [None]
  - Somnolence [None]
  - Decreased interest [None]
  - General physical health deterioration [None]
  - Disturbance in attention [None]
  - Apathy [None]
  - Anxiety [None]
  - Drug intolerance [None]

NARRATIVE: CASE EVENT DATE: 20221015
